FAERS Safety Report 9048494 (Version 1)
Quarter: 2013Q1

REPORT INFORMATION
  Report Type: Spontaneous
  Country: US (occurrence: None)
  Receive Date: 20130130
  Receipt Date: 20130130
  Transmission Date: 20140127
  Serious: Yes (Hospitalization)
  Sender: FDA-Public Use
  Company Number: None

PATIENT
  Age: 30 Year
  Sex: Female
  Weight: 68.7 kg

DRUGS (4)
  1. EXJADE [Suspect]
     Indication: IRON OVERLOAD
     Dosage: RECENT
     Route: 048
  2. PERCOCET [Concomitant]
  3. HYDROXYUREA [Concomitant]
  4. FOLIC ACID [Concomitant]

REACTIONS (5)
  - Abdominal pain upper [None]
  - Gastrointestinal haemorrhage [None]
  - Duodenitis [None]
  - Haemorrhagic anaemia [None]
  - Sickle cell anaemia with crisis [None]
